FAERS Safety Report 16367254 (Version 1)
Quarter: 2019Q2

REPORT INFORMATION
  Report Type: Report from Study
  Country: US (occurrence: US)
  Receive Date: 20190529
  Receipt Date: 20190529
  Transmission Date: 20190711
  Serious: Yes (Life-Threatening, Hospitalization, Other)
  Sender: FDA-Public Use
  Company Number: US-MYLANLABS-2019M1049287

PATIENT
  Age: 27 Year
  Sex: Female

DRUGS (4)
  1. MIDAZOLAM [Suspect]
     Active Substance: MIDAZOLAM HYDROCHLORIDE
     Indication: SEDATIVE THERAPY
     Route: 042
  2. SODIUM CITRATE AND CITRIC ACID [Suspect]
     Active Substance: CITRIC ACID MONOHYDRATE\SODIUM CITRATE
     Indication: BLOOD ALKALINISATION THERAPY
     Dosage: 15 MILLILITER
     Route: 048
  3. SALBUTAMOL [Suspect]
     Active Substance: ALBUTEROL
     Indication: UPPER AIRWAY OBSTRUCTION
     Dosage: NEBULISED
     Route: 050
  4. PROPOFOL. [Suspect]
     Active Substance: PROPOFOL
     Indication: SEDATIVE THERAPY
     Route: 042

REACTIONS (2)
  - Maternal exposure during pregnancy [Recovered/Resolved]
  - Upper airway obstruction [Recovered/Resolved]
